FAERS Safety Report 8120806-5 (Version None)
Quarter: 2012Q1

REPORT INFORMATION
  Report Type: 
  Country: None (occurrence: None)
  Receive Date: 20120207
  Receipt Date: 20120130
  Transmission Date: 20120608
  Serious: Yes (Hospitalization)
  Sender: FDA-Public Use
  Company Number: US-BAYER-2011-104584

PATIENT
  Age: 37 Year
  Sex: Female
  Weight: 62.585 kg

DRUGS (16)
  1. DICYCLOMINE [Concomitant]
     Dosage: UNK
     Dates: start: 20090901
  2. METRONIDAZOLE [Concomitant]
     Dosage: 500 MG, UNK
     Dates: start: 20091201
  3. NABUMETONE [Concomitant]
     Dosage: UNK
     Dates: start: 20090701
  4. GREEN LIZARD [Concomitant]
     Indication: GASTROOESOPHAGEAL REFLUX DISEASE
     Dosage: UNK
     Dates: start: 20090901
  5. YAZ [Suspect]
     Indication: PREMENSTRUAL SYNDROME
  6. PROGESTERONE [Concomitant]
     Indication: HORMONE REPLACEMENT THERAPY
     Dosage: UNK
     Dates: start: 20090701, end: 20100101
  7. FAMOTIDINE [Concomitant]
     Indication: GASTROOESOPHAGEAL REFLUX DISEASE
     Dosage: 20 MG, UNK
     Dates: start: 20090901
  8. PROGESTERONE [Concomitant]
     Dosage: 40 MG, UNK
  9. CIPROFLOXACIN [Concomitant]
     Dosage: UNK
     Dates: start: 20090901
  10. DICYCLOMINE [Concomitant]
     Dosage: UNK
     Dates: start: 20080701
  11. DICYCLOMINE [Concomitant]
     Dosage: UNK
     Dates: start: 20081001
  12. SUMATRIPTAN [Concomitant]
     Indication: MIGRAINE
     Dosage: 50 MG, UNK
     Dates: start: 20091001
  13. METRONIDAZOLE [Concomitant]
     Dosage: 500 MG, UNK
     Dates: start: 20090901
  14. YAZ [Suspect]
     Indication: ORAL CONTRACEPTION
     Dosage: UNK
     Route: 048
     Dates: start: 20080401, end: 20090801
  15. DICYCLOMINE [Concomitant]
     Dosage: UNK
     Dates: start: 20090701
  16. OMEPRAZOLE [Concomitant]
     Indication: GASTROOESOPHAGEAL REFLUX DISEASE
     Dosage: 40 MG, UNK
     Dates: start: 20090901

REACTIONS (2)
  - GALLBLADDER DISORDER [None]
  - CHOLECYSTITIS CHRONIC [None]
